FAERS Safety Report 9711246 (Version 1)
Quarter: 2013Q4

REPORT INFORMATION
  Report Type: Spontaneous
  Country: US (occurrence: US)
  Receive Date: 20131126
  Receipt Date: 20131126
  Transmission Date: 20140711
  Serious: No
  Sender: FDA-Public Use
  Company Number: US-BRISTOL-MYERS SQUIBB COMPANY-19047885

PATIENT
  Age: 63 Year
  Sex: Female
  Weight: 55.33 kg

DRUGS (4)
  1. BYDUREON [Suspect]
     Indication: TYPE 2 DIABETES MELLITUS
  2. METFORMIN [Concomitant]
  3. LANTUS [Concomitant]
     Dosage: 1DF=6 UNITS
     Route: 058
  4. SYNTHROID [Concomitant]

REACTIONS (3)
  - Injection site nodule [Not Recovered/Not Resolved]
  - Injection site discolouration [Recovering/Resolving]
  - Injection site pain [Recovering/Resolving]
